FAERS Safety Report 16633567 (Version 1)
Quarter: 2019Q3

REPORT INFORMATION
  Report Type: Spontaneous
  Country: US (occurrence: US)
  Receive Date: 20190725
  Receipt Date: 20190725
  Transmission Date: 20191004
  Serious: Yes (Hospitalization, Disabling, Other)
  Sender: FDA-Public Use
  Company Number: None

PATIENT
  Age: 65 Year
  Sex: Male
  Weight: 72 kg

DRUGS (5)
  1. SOLU-CORTEF [Concomitant]
     Active Substance: HYDROCORTISONE SODIUM SUCCINATE
  2. ALBUTEROL INHALER [Concomitant]
     Active Substance: ALBUTEROL
  3. PREDNISONE. [Concomitant]
     Active Substance: PREDNISONE
  4. LEVOFLOXACIN. [Suspect]
     Active Substance: LEVOFLOXACIN
     Indication: BRONCHITIS
     Dosage: ?          OTHER ROUTE:IV TRANSITIONED TO ORAL?
     Dates: start: 20190715, end: 20190720
  5. MAGNESIUM [Concomitant]
     Active Substance: MAGNESIUM

REACTIONS (5)
  - Gait inability [None]
  - Nervousness [None]
  - Muscle spasms [None]
  - Blood magnesium increased [None]
  - Tissue rupture [None]

NARRATIVE: CASE EVENT DATE: 20190715
